FAERS Safety Report 14060743 (Version 9)
Quarter: 2020Q4

REPORT INFORMATION
  Report Type: Spontaneous
  Country: US (occurrence: US)
  Receive Date: 20171009
  Receipt Date: 20201126
  Transmission Date: 20210113
  Serious: Yes (Other)
  Sender: FDA-Public Use
  Company Number: PHEH2017US031867

PATIENT
  Sex: Female

DRUGS (1)
  1. ZOFRAN [Suspect]
     Active Substance: ONDANSETRON HYDROCHLORIDE
     Indication: FOETAL EXPOSURE DURING PREGNANCY
     Dosage: MOTHER^S DOSE: 4 MG, PRN
     Route: 064

REACTIONS (47)
  - Tricuspid valve incompetence [Unknown]
  - Dizziness [Unknown]
  - Vulvovaginitis [Unknown]
  - Insomnia [Unknown]
  - Pneumonia [Unknown]
  - Dysphagia [Unknown]
  - Decreased appetite [Unknown]
  - Otitis media [Unknown]
  - Ligament sprain [Unknown]
  - Polyuria [Unknown]
  - Headache [Unknown]
  - Lymphadenopathy [Unknown]
  - Joint effusion [Unknown]
  - Viral infection [Unknown]
  - Supraventricular tachycardia [Unknown]
  - Urinary tract infection [Unknown]
  - Oropharyngeal pain [Unknown]
  - Acute sinusitis [Unknown]
  - Abdominal pain [Unknown]
  - Pulmonary valve incompetence [Unknown]
  - Foetal exposure during pregnancy [Unknown]
  - Injury [Unknown]
  - Seasonal allergy [Unknown]
  - Tonsillar hypertrophy [Unknown]
  - Ear pain [Unknown]
  - Rhinitis allergic [Unknown]
  - Upper respiratory tract infection [Unknown]
  - Conjunctivitis [Unknown]
  - Myositis [Unknown]
  - Fatigue [Unknown]
  - Palpitations [Unknown]
  - Chronic sinusitis [Unknown]
  - Constipation [Unknown]
  - Pharyngitis [Unknown]
  - Bronchitis [Unknown]
  - Nasopharyngitis [Unknown]
  - Chest pain [Unknown]
  - Atrial tachycardia [Unknown]
  - Pharyngitis streptococcal [Unknown]
  - Pyrexia [Unknown]
  - Herpangina [Unknown]
  - Dysuria [Unknown]
  - Cough [Unknown]
  - Dermatitis atopic [Unknown]
  - Supraventricular extrasystoles [Unknown]
  - Limb injury [Unknown]
  - Essential hypertension [Unknown]
